FAERS Safety Report 11311503 (Version 1)
Quarter: 2015Q3

REPORT INFORMATION
  Report Type: Spontaneous
  Country: DE (occurrence: DE)
  Receive Date: 20150727
  Receipt Date: 20150727
  Transmission Date: 20151125
  Serious: Yes (Other)
  Sender: FDA-Public Use
  Company Number: DE-BAYER-2015-386963

PATIENT
  Age: 64 Year
  Sex: Female
  Weight: 65 kg

DRUGS (2)
  1. ULTRAVIST [Suspect]
     Active Substance: IOPROMIDE
     Indication: COMPUTERISED TOMOGRAM ABDOMEN
     Dosage: 40 ML, ONCE
     Route: 042
  2. ULTRAVIST [Suspect]
     Active Substance: IOPROMIDE
     Indication: RENAL CYST

REACTIONS (2)
  - Pharyngeal oedema [Recovered/Resolved]
  - Sneezing [Recovered/Resolved]
